FAERS Safety Report 6423556-6 (Version None)
Quarter: 2009Q4

REPORT INFORMATION
  Report Type: 
  Country: None (occurrence: None)
  Receive Date: 20091102
  Receipt Date: 20091030
  Transmission Date: 20100525
  Serious: Yes (Hospitalization)
  Sender: FDA-Public Use
  Company Number: US-BAYER-200929142GPV

PATIENT
  Age: 78 Year
  Sex: Male

DRUGS (6)
  1. SORAFENIB [Suspect]
     Indication: METASTATIC NEOPLASM
     Dosage: TOTAL DAILY DOSE: 800 MG
     Route: 048
     Dates: start: 20080218, end: 20091018
  2. AMG 386 OR PLACEBO [Suspect]
     Indication: METASTATIC NEOPLASM
     Route: 042
     Dates: start: 20080218, end: 20091001
  3. NISISCO [Concomitant]
     Route: 048
  4. IMODIUM [Concomitant]
     Route: 048
     Dates: start: 20080317
  5. ALUMINUM HYDROXIDE AND MAGNESIUM TRISILICATE [Concomitant]
     Route: 048
     Dates: start: 20080317
  6. LIDOCAINE HYDROCHLORIDE / PRILOCAINE HYDROCHLORIDE [Concomitant]
     Route: 062
     Dates: start: 20080331

REACTIONS (2)
  - ANAL ABSCESS [None]
  - ANAL FISTULA [None]
